FAERS Safety Report 13689618 (Version 1)
Quarter: 2017Q2

REPORT INFORMATION
  Report Type: Spontaneous
  Country: US (occurrence: US)
  Receive Date: 20170623
  Receipt Date: 20170623
  Transmission Date: 20170830
  Serious: Yes (Other)
  Sender: FDA-Public Use
  Company Number: None

PATIENT
  Sex: Female

DRUGS (1)
  1. TACROLIMUS. [Suspect]
     Active Substance: TACROLIMUS
     Dosage: THIN LAYER BID TOPICALLY
     Route: 061

REACTIONS (3)
  - Condition aggravated [None]
  - Transient ischaemic attack [None]
  - Systemic lupus erythematosus [None]
